FAERS Safety Report 22035666 (Version 1)
Quarter: 2023Q1

REPORT INFORMATION
  Report Type: Spontaneous
  Country: US (occurrence: US)
  Receive Date: 20230224
  Receipt Date: 20230224
  Transmission Date: 20230418
  Serious: No
  Sender: FDA-Public Use
  Company Number: US-BAYER-2023A010776

PATIENT
  Age: 74 Year
  Sex: Male

DRUGS (5)
  1. MIRALAX [Suspect]
     Active Substance: POLYETHYLENE GLYCOL 3350
     Indication: Constipation
  2. LONSURF [Suspect]
     Active Substance: TIPIRACIL HYDROCHLORIDE\TRIFLURIDINE
     Indication: Rectal cancer
     Dosage: 80 MG, BID
     Route: 048
  3. LONSURF [Suspect]
     Active Substance: TIPIRACIL HYDROCHLORIDE\TRIFLURIDINE
     Indication: Rectal cancer
     Dosage: 40 MG, BID, 1-5 AND DAY 8- 12 OF EACH 28 DAY CYCLE
     Route: 048
     Dates: start: 20220624
  4. LONSURF [Suspect]
     Active Substance: TIPIRACIL HYDROCHLORIDE\TRIFLURIDINE
     Indication: Rectal cancer
     Dosage: 20 MG, BID
     Route: 048
  5. DOCUSATE SODIUM [Suspect]
     Active Substance: DOCUSATE SODIUM

REACTIONS (6)
  - Diarrhoea [Not Recovered/Not Resolved]
  - Abdominal pain upper [Not Recovered/Not Resolved]
  - Dyspnoea [Not Recovered/Not Resolved]
  - Alopecia [Not Recovered/Not Resolved]
  - Asthenia [Not Recovered/Not Resolved]
  - Fatigue [Not Recovered/Not Resolved]
